FAERS Safety Report 7718297-9 (Version None)
Quarter: 2011Q3

REPORT INFORMATION
  Report Type: 
  Country: None (occurrence: None)
  Receive Date: 20110830
  Receipt Date: 20110825
  Transmission Date: 20111222
  Serious: Yes (Death, Disabling, Other)
  Sender: FDA-Public Use
  Company Number: PHEH2009US16963

PATIENT
  Sex: Female

DRUGS (20)
  1. NEXIUM [Concomitant]
     Dosage: 20 MG, QD
  2. NEXAVAR [Concomitant]
     Dates: start: 20080401, end: 20090401
  3. LEXAPRO [Concomitant]
  4. CLONIDINE HYDROCHLORIDE [Concomitant]
     Dosage: 1 DF, BID
     Route: 048
  5. LANTUS [Concomitant]
     Dosage: 95 U, BID
  6. PANTOPRAZOLE [Concomitant]
     Route: 048
  7. DOCUSATE SODIUM [Concomitant]
     Dosage: 100 MG, BID
     Route: 048
  8. VENTOLIN HFA [Concomitant]
  9. GLYBURIDE AND METFORMIN HCL [Concomitant]
     Dosage: 2 DF, BID
     Route: 048
  10. TRAZODONE HYDROCHLORIDE [Concomitant]
     Dosage: 1 DF, QHS
     Route: 048
  11. SUTENT [Concomitant]
     Dates: start: 20090401, end: 20090801
  12. AFINITOR [Concomitant]
     Dosage: 1 DF, QD
     Route: 048
  13. LOTREL [Concomitant]
     Dosage: 1 DF, QD
     Route: 048
  14. OXYCONTIN [Concomitant]
     Dosage: 1 DF, Q12H
     Route: 048
  15. DEXAMETHASONE [Concomitant]
     Dosage: 1 DF, QD
     Route: 048
  16. METOPROLOL TARTRATE [Concomitant]
     Dosage: 0.5 DF, BID
     Route: 048
  17. ZOMETA [Suspect]
     Indication: METASTASES TO BONE
  18. ALBUTEROL SULFATE AUTOHALER [Concomitant]
  19. OXYCODONE HYDROCHLORIDE [Concomitant]
     Dosage: 1 DF, Q4H
     Route: 048
  20. NOVOLOG [Concomitant]

REACTIONS (62)
  - HEPATIC STEATOSIS [None]
  - PERICARDIAL EFFUSION [None]
  - LYMPHADENOPATHY [None]
  - ANXIETY [None]
  - PYREXIA [None]
  - ABDOMINAL HERNIA [None]
  - CHEST PAIN [None]
  - DEPRESSION [None]
  - DECREASED APPETITE [None]
  - PROTEINURIA [None]
  - DEATH [None]
  - ATELECTASIS [None]
  - ADNEXA UTERI CYST [None]
  - OSTEONECROSIS OF JAW [None]
  - HAEMATURIA [None]
  - VASCULAR INSUFFICIENCY [None]
  - ELECTROLYTE IMBALANCE [None]
  - VOMITING [None]
  - SLEEP APNOEA SYNDROME [None]
  - HYPOAESTHESIA [None]
  - TINNITUS [None]
  - HIGH DENSITY LIPOPROTEIN DECREASED [None]
  - HYPERCALCAEMIA [None]
  - PNEUMOTHORAX [None]
  - CARDIOMEGALY [None]
  - PLEURAL EFFUSION [None]
  - DYSPNOEA [None]
  - OSTEOMYELITIS [None]
  - OSTEOLYSIS [None]
  - OEDEMA PERIPHERAL [None]
  - ABDOMINAL PAIN [None]
  - OSTEOARTHRITIS [None]
  - PNEUMONIA [None]
  - ARTHRALGIA [None]
  - NIGHT SWEATS [None]
  - METASTATIC PAIN [None]
  - ANHEDONIA [None]
  - OSTEOCHONDROSIS [None]
  - GASTROOESOPHAGEAL REFLUX DISEASE [None]
  - ANAEMIA OF MALIGNANT DISEASE [None]
  - BLOOD TRIGLYCERIDES INCREASED [None]
  - HYPERKALAEMIA [None]
  - VERTIGO [None]
  - MUSCLE SPASMS [None]
  - CONSTIPATION [None]
  - METABOLIC SYNDROME [None]
  - WEIGHT DECREASED [None]
  - METASTASES TO BONE [None]
  - OSTEOSCLEROSIS [None]
  - RENAL MASS [None]
  - POLYDIPSIA [None]
  - MUSCULAR WEAKNESS [None]
  - LUNG NEOPLASM [None]
  - INJURY [None]
  - PAIN [None]
  - METASTASES TO ADRENALS [None]
  - NAUSEA [None]
  - BACK PAIN [None]
  - DIARRHOEA [None]
  - OBESITY [None]
  - RENAL FAILURE ACUTE [None]
  - LIPID METABOLISM DISORDER [None]
